FAERS Safety Report 24202790 (Version 2)
Quarter: 2024Q3

REPORT INFORMATION
  Report Type: Spontaneous
  Country: US (occurrence: US)
  Receive Date: 20240813
  Receipt Date: 20240828
  Transmission Date: 20241017
  Serious: No
  Sender: BIOGEN
  Company Number: US-BIOGEN-2024BI01272234

PATIENT
  Sex: Female

DRUGS (2)
  1. VUMERITY [Suspect]
     Active Substance: DIROXIMEL FUMARATE
     Indication: Multiple sclerosis
     Route: 050
     Dates: start: 20240621
  2. VUMERITY [Suspect]
     Active Substance: DIROXIMEL FUMARATE
     Route: 050
     Dates: start: 20240614, end: 20240620

REACTIONS (9)
  - Multiple sclerosis [Unknown]
  - Nocturnal dyspnoea [Unknown]
  - Dehydration [Unknown]
  - Abdominal discomfort [Unknown]
  - Palpitations [Recovered/Resolved]
  - Blood potassium decreased [Recovered/Resolved]
  - Pruritus [Unknown]
  - Erythema [Unknown]
  - Feeling hot [Unknown]

NARRATIVE: CASE EVENT DATE: 20240101
